FAERS Safety Report 11120268 (Version 1)
Quarter: 2015Q2

REPORT INFORMATION
  Report Type: Spontaneous
  Country: JP (occurrence: JP)
  Receive Date: 20150518
  Receipt Date: 20150518
  Transmission Date: 20150821
  Serious: Yes (Hospitalization)
  Sender: FDA-Public Use
  Company Number: JP-MYLANLABS-2015M1016048

PATIENT

DRUGS (3)
  1. AMPICILLIN [Suspect]
     Active Substance: AMPICILLIN
     Indication: CONGENITAL SYPHILIS
     Dosage: 50 MG/KG/DAY FOR 3 DAYS, THEN 100 MG/KG/DAY
     Route: 042
  2. AMPICILLIN [Suspect]
     Active Substance: AMPICILLIN
     Dosage: 100 MG/KG/DAY FOR 11 DAYS
     Route: 042
  3. AMPICILLIN [Suspect]
     Active Substance: AMPICILLIN
     Route: 042

REACTIONS (2)
  - Foetal exposure during pregnancy [Recovered/Resolved]
  - Jarisch-Herxheimer reaction [Recovered/Resolved]
